FAERS Safety Report 15940701 (Version 1)
Quarter: 2019Q1

REPORT INFORMATION
  Report Type: Spontaneous
  Country: US (occurrence: US)
  Receive Date: 20190208
  Receipt Date: 20190208
  Transmission Date: 20190417
  Serious: No
  Sender: FDA-Public Use
  Company Number: US-PFIZER INC-2018065354

PATIENT
  Age: 12 Year
  Sex: Male
  Weight: 37 kg

DRUGS (2)
  1. GENOTROPIN [Suspect]
     Active Substance: SOMATROPIN
     Dosage: 2 MG, EVERY DAY FOR 6 DAYS AND THEN OFF FOR ONE DAY
     Route: 058
     Dates: start: 20180613
  2. GENOTROPIN [Suspect]
     Active Substance: SOMATROPIN
     Indication: GROWTH HORMONE DEFICIENCY
     Dosage: 2 MG, EVERY DAY FOR 6 DAYS AND THEN OFF FOR ONE DAY
     Route: 058
     Dates: start: 201712

REACTIONS (4)
  - Product dose omission [Unknown]
  - Device leakage [Unknown]
  - Weight decreased [Unknown]
  - Product dispensing error [Unknown]

NARRATIVE: CASE EVENT DATE: 201802
